FAERS Safety Report 4616032-4 (Version None)
Quarter: 2005Q1

REPORT INFORMATION
  Report Type: 
  Country: None (occurrence: None)
  Receive Date: 20050321
  Receipt Date: 20050304
  Transmission Date: 20050727
  Serious: Yes (Hospitalization, Other)
  Sender: FDA-Public Use
  Company Number: S05-GER-01005-01

PATIENT
  Age: 55 Year
  Sex: Female
  Weight: 62 kg

DRUGS (2)
  1. CIPRALEX (ESCITALOPRAM) [Suspect]
     Indication: DEPRESSION
     Dosage: 10 MG QD PO
     Route: 048
     Dates: start: 20040817, end: 20040829
  2. INSIDON (OPIPRAMOL) [Concomitant]
     Indication: SLEEP DISORDER
     Dates: start: 20040817, end: 20040829

REACTIONS (6)
  - CONFUSIONAL STATE [None]
  - DISORIENTATION [None]
  - FEAR [None]
  - INSOMNIA [None]
  - LOGORRHOEA [None]
  - PARANOIA [None]
